FAERS Safety Report 14065259 (Version 3)
Quarter: 2017Q4

REPORT INFORMATION
  Report Type: Report from Study
  Country: BR (occurrence: BR)
  Receive Date: 20171009
  Receipt Date: 20171205
  Transmission Date: 20180321
  Serious: Yes (Other)
  Sender: FDA-Public Use
  Company Number: PHHY2017BR118023

PATIENT
  Sex: Male
  Weight: 97 kg

DRUGS (5)
  1. COSENTYX [Suspect]
     Active Substance: SECUKINUMAB
     Dosage: 1 DF, QMO
     Route: 058
     Dates: start: 201710
  2. COSENTYX [Suspect]
     Active Substance: SECUKINUMAB
     Dosage: UNK, QMO
     Route: 058
  3. COSENTYX [Suspect]
     Active Substance: SECUKINUMAB
     Indication: PSORIASIS
     Dosage: 150 MG, QW
     Route: 058
     Dates: start: 201706
  4. COSENTYX [Suspect]
     Active Substance: SECUKINUMAB
     Indication: PSORIATIC ARTHROPATHY
     Dosage: 150 MG, QMO
     Route: 058
     Dates: start: 20170719
  5. COSENTYX [Suspect]
     Active Substance: SECUKINUMAB
     Dosage: UNK, QMO
     Route: 058

REACTIONS (7)
  - Inguinal hernia [Recovering/Resolving]
  - Tonsillitis [Unknown]
  - Umbilical hernia [Recovering/Resolving]
  - Spinal pain [Not Recovered/Not Resolved]
  - Blindness [Not Recovered/Not Resolved]
  - Weight decreased [Unknown]
  - Peripheral swelling [Recovered/Resolved]
